FAERS Safety Report 10446681 (Version 4)
Quarter: 2015Q1

REPORT INFORMATION
  Report Type: Spontaneous
  Country: IT (occurrence: IT)
  Receive Date: 20140911
  Receipt Date: 20150205
  Transmission Date: 20150720
  Serious: Yes (Hospitalization)
  Sender: FDA-Public Use
  Company Number: IT-SA-2014SA121844

PATIENT
  Age: 80 Year
  Sex: Male

DRUGS (10)
  1. ENAPREN [Concomitant]
     Active Substance: ENALAPRIL MALEATE
  2. CLEXANE [Suspect]
     Active Substance: ENOXAPARIN SODIUM
     Indication: ACUTE MYOCARDIAL INFARCTION
     Dosage: DOSE-4IU(LESS THAN 1000) DAILY
     Route: 065
     Dates: start: 20140801, end: 20140804
  3. FUROSEMIDE. [Concomitant]
     Active Substance: FUROSEMIDE
     Dosage: 25 MG TABLETS (1 TABLET / DAY)
     Dates: start: 20140803
  4. LANSOPRAZOLE. [Concomitant]
     Active Substance: LANSOPRAZOLE
     Dosage: 30 MG CAPSULE (1 CAPSULE/ DAY)
  5. CARDURA [Concomitant]
     Active Substance: DOXAZOSIN MESYLATE
     Route: 048
  6. CARDURA [Concomitant]
     Active Substance: DOXAZOSIN MESYLATE
     Dates: start: 20140802
  7. CLARITHROMYCIN. [Concomitant]
     Active Substance: CLARITHROMYCIN
     Dates: end: 20140802
  8. TRIATEC [Concomitant]
     Active Substance: RAMIPRIL
     Route: 048
  9. CARDIOASPIRIN [Concomitant]
     Active Substance: ASPIRIN
     Route: 048
  10. PANTOPRAZOLE [Concomitant]
     Active Substance: PANTOPRAZOLE SODIUM
     Route: 042

REACTIONS (2)
  - Microangiopathic haemolytic anaemia [Recovering/Resolving]
  - Heparin-induced thrombocytopenia [Recovering/Resolving]

NARRATIVE: CASE EVENT DATE: 20140801
